FAERS Safety Report 8603416 (Version 4)
Quarter: 2012Q4

REPORT INFORMATION
  Report Type: 
  Country: US (occurrence: US)
  Receive Date: 20120607
  Receipt Date: 20120928
  Transmission Date: 20130627
  Serious: Yes (Hospitalization, Other)
  Sender: FDA-Public Use
  Company Number: US-BAYER-2012-055893

PATIENT
  Age: 23 Year
  Sex: Male

DRUGS (38)
  1. KOGENATE FS [Suspect]
     Indication: FACTOR VIII DEFICIENCY
     Dosage: prophylaxis
     Dates: start: 201107, end: 201202
  2. KOGENATE FS [Suspect]
     Indication: FACTOR VIII DEFICIENCY
     Dosage: bolus dose
     Dates: start: 201202, end: 201202
  3. KOGENATE FS [Suspect]
     Indication: FACTOR VIII DEFICIENCY
     Dosage: 4 IU/kg/hr continuous infusion
     Dates: start: 201203, end: 201203
  4. KOGENATE FS [Suspect]
     Indication: FACTOR VIII DEFICIENCY
     Dosage: 5 IU/ kg/ hr continuous infusion
     Dates: start: 201204, end: 201204
  5. KOGENATE FS [Suspect]
     Indication: FACTOR VIII DEFICIENCY
     Dosage: continuous infusion
     Dates: start: 201205, end: 201205
  6. KOGENATE FS [Suspect]
     Indication: FACTOR VIII DEFICIENCY
     Dosage: 4260 u
     Dates: start: 20120204
  7. KOGENATE FS [Suspect]
     Indication: FACTOR VIII DEFICIENCY
     Dosage: 4260 u
     Dates: start: 20120205
  8. KOGENATE FS [Suspect]
     Indication: FACTOR VIII DEFICIENCY
     Dosage: 4260 u
     Dates: start: 20120205
  9. KOGENATE FS [Suspect]
     Indication: FACTOR VIII DEFICIENCY
     Dosage: 4260 u
     Dates: start: 20120206
  10. KOGENATE FS [Suspect]
     Indication: FACTOR VIII DEFICIENCY
     Dosage: 4260 u
     Dates: start: 20120206
  11. KOGENATE FS [Suspect]
     Indication: FACTOR VIII DEFICIENCY
     Dosage: 3063 u
     Dates: start: 20120206
  12. KOGENATE FS [Suspect]
     Indication: FACTOR VIII DEFICIENCY
     Dosage: 3063 u
     Dates: start: 20120207
  13. KOGENATE FS [Suspect]
     Indication: FACTOR VIII DEFICIENCY
     Dosage: 3063 u
     Dates: start: 20120207
  14. KOGENATE FS [Suspect]
     Indication: FACTOR VIII DEFICIENCY
     Dosage: 3063 u
     Dates: start: 20120208
  15. KOGENATE FS [Suspect]
     Indication: FACTOR VIII DEFICIENCY
     Dosage: 4084 u
     Dates: start: 20120210
  16. KOGENATE FS [Suspect]
     Indication: FACTOR VIII DEFICIENCY
     Dosage: 4096 u
     Dates: start: 20120310
  17. KOGENATE FS [Suspect]
     Indication: FACTOR VIII DEFICIENCY
     Dosage: 11264 u
     Dates: start: 20120310
  18. KOGENATE FS [Suspect]
     Indication: FACTOR VIII DEFICIENCY
     Dosage: 5120 u
     Dates: start: 20120311
  19. KOGENATE FS [Suspect]
     Indication: FACTOR VIII DEFICIENCY
     Dosage: 2645 u
     Dates: start: 20120312
  20. KOGENATE FS [Suspect]
     Indication: FACTOR VIII DEFICIENCY
     Dosage: 7168 u
     Dates: start: 20120312
  21. KOGENATE FS [Suspect]
     Indication: FACTOR VIII DEFICIENCY
     Dosage: 5120 u
     Dates: start: 20120313
  22. KOGENATE FS [Suspect]
     Indication: FACTOR VIII DEFICIENCY
     Dosage: 1587 u
     Dates: start: 20120313
  23. KOGENATE FS [Suspect]
     Indication: FACTOR VIII DEFICIENCY
     Dosage: 3072 u and 1058 u
     Dates: start: 20120314
  24. KOGENATE FS [Suspect]
     Indication: FACTOR VIII DEFICIENCY
     Dosage: 2078 u
     Dates: start: 20120314
  25. KOGENATE FS [Suspect]
     Indication: FACTOR VIII DEFICIENCY
     Dosage: 1288 u
     Dates: start: 20120314
  26. KOGENATE FS [Suspect]
     Indication: FACTOR VIII DEFICIENCY
     Dosage: 4156 u and 4096 u
     Dates: start: 20120315
  27. KOGENATE FS [Suspect]
     Indication: FACTOR VIII DEFICIENCY
     Dosage: 4096 u
     Dates: start: 20120316
  28. KOGENATE FS [Suspect]
     Indication: FACTOR VIII DEFICIENCY
     Dosage: 4156 u
     Dates: start: 20120317
  29. KOGENATE FS [Suspect]
     Indication: FACTOR VIII DEFICIENCY
     Dosage: 4156 u,9351 u and 2595 u
     Dates: start: 20120405
  30. KOGENATE FS [Suspect]
     Indication: FACTOR VIII DEFICIENCY
     Dosage: 1039 u
     Dates: start: 20120406
  31. KOGENATE FS [Suspect]
     Indication: FACTOR VIII DEFICIENCY
     Dosage: 264 u, 1039 u and 9351 u
     Dates: start: 20120407
  32. KOGENATE FS [Suspect]
     Indication: FACTOR VIII DEFICIENCY
     Dosage: 9351 u
     Dates: start: 20120408
  33. KOGENATE FS [Suspect]
     Indication: FACTOR VIII DEFICIENCY
     Dosage: 9351 u
     Dates: start: 20120409
  34. KOGENATE FS [Suspect]
     Indication: FACTOR VIII DEFICIENCY
     Dosage: 4156 u
     Dates: start: 20120410
  35. KOGENATE FS [Suspect]
     Indication: FACTOR VIII DEFICIENCY
     Dosage: 10952 u
     Dates: start: 20120528
  36. KOGENATE FS [Suspect]
     Indication: FACTOR VIII DEFICIENCY
     Dosage: 3195 u and 536 u
     Dates: start: 20120528
  37. KOGENATE FS [Suspect]
     Indication: FACTOR VIII DEFICIENCY
     Dosage: 3102 u and 536 u
     Dates: start: 20120529
  38. ADVATE [FACTOR VIII (ANTIHAEMOPHILIC FACTOR)] [Concomitant]
     Indication: PROPHYLAXIS

REACTIONS (2)
  - Anti factor VIII antibody positive [None]
  - Haemorrhage [None]
